FAERS Safety Report 18241442 (Version 2)
Quarter: 2020Q3

REPORT INFORMATION
  Report Type: Spontaneous
  Country: RU (occurrence: RU)
  Receive Date: 20200908
  Receipt Date: 20200922
  Transmission Date: 20201103
  Serious: Yes (Other)
  Sender: FDA-Public Use
  Company Number: RU-SA-2020SA221838

PATIENT

DRUGS (5)
  1. CLEXANE [Suspect]
     Active Substance: ENOXAPARIN SODIUM
     Dosage: 4000 UNK, QD; (A FEW DAYS BEFORE IVF AND DURING 4 WEEKS AFTER IVF)
     Dates: start: 2019, end: 2019
  2. UTROGESTAN [Concomitant]
     Active Substance: PROGESTERONE
  3. MAGNE B6 FORTE [Suspect]
     Active Substance: MAGNESIUM CITRATE\PYRIDOXINE
     Indication: PRODUCT USED FOR UNKNOWN INDICATION
     Dosage: 1 DF, TID; (BEFORE IVF AND DURING 4 WEEKS AFTER IVF)
     Route: 048
     Dates: start: 2019, end: 2019
  4. SALOFALK [MESALAZINE] [Concomitant]
     Active Substance: MESALAMINE
     Indication: COLITIS
     Dosage: 2 DF, QD
  5. VITAMIN D [COLECALCIFEROL] [Concomitant]
     Active Substance: CHOLECALCIFEROL
     Dosage: 2500 IU, QD
     Route: 048

REACTIONS (6)
  - Abdominal pain upper [Not Recovered/Not Resolved]
  - Abortion spontaneous [Unknown]
  - Abdominal discomfort [Not Recovered/Not Resolved]
  - Exposure during pregnancy [Unknown]
  - Duodenitis [Unknown]
  - Incorrect drug administration rate [Unknown]

NARRATIVE: CASE EVENT DATE: 2019
